FAERS Safety Report 7005778-9 (Version None)
Quarter: 2010Q3

REPORT INFORMATION
  Report Type: 
  Country: None (occurrence: None)
  Receive Date: 20100921
  Receipt Date: 20100913
  Transmission Date: 20110219
  Serious: Yes (Hospitalization, Other)
  Sender: FDA-Public Use
  Company Number: PHHO2010US14047

PATIENT
  Age: 76 Year
  Sex: Female

DRUGS (5)
  1. ZOMETA [Suspect]
     Dosage: UNK
  2. THALIDOMIDE [Suspect]
     Indication: MULTIPLE MYELOMA
     Dosage: UNK
     Route: 048
     Dates: start: 20100520
  3. MELPHALAN HYDROCHLORIDE [Suspect]
     Indication: MULTIPLE MYELOMA
     Dosage: 9MG/M2 DAILY ON DAYS 1-4 OF EACH CYCLE
     Route: 048
  4. PREDNISOLONE [Suspect]
     Indication: MULTIPLE MYELOMA
     Dosage: 100MG DAILY ON DAYS 1-4 OF CYCLE
     Route: 048
  5. ASPIRIN [Concomitant]

REACTIONS (8)
  - ARRHYTHMIA SUPRAVENTRICULAR [None]
  - ATRIAL FLUTTER [None]
  - BLOOD CREATININE INCREASED [None]
  - FATIGUE [None]
  - LETHARGY [None]
  - NODAL ARRHYTHMIA [None]
  - RENAL FAILURE [None]
  - SEPSIS [None]
